FAERS Safety Report 10151507 (Version 1)
Quarter: 2014Q2

REPORT INFORMATION
  Report Type: Spontaneous
  Country: US (occurrence: US)
  Receive Date: 20140503
  Receipt Date: 20140503
  Transmission Date: 20141212
  Serious: No
  Sender: FDA-Public Use
  Company Number: US-TEVA-478535USA

PATIENT
  Age: 94 Year
  Sex: Male
  Weight: 77.18 kg

DRUGS (2)
  1. PROAIR HFA [Suspect]
     Indication: DYSPNOEA
     Dosage: ONE PUFF EVERY 6 HOURS AS NEEDED
     Route: 055
  2. ANTIHYPERTENSIVES [Concomitant]
     Indication: CARDIAC DISORDER

REACTIONS (3)
  - Drug ineffective [Not Recovered/Not Resolved]
  - Dyspnoea [Not Recovered/Not Resolved]
  - Cough [Not Recovered/Not Resolved]
